FAERS Safety Report 8125803 (Version 12)
Quarter: 2013Q1

REPORT INFORMATION
  Report Type: Report from Study
  Country: US (occurrence: US)
  Receive Date: 20110908
  Receipt Date: 20130322
  Transmission Date: 20140127
  Serious: Yes (Death, Hospitalization)
  Sender: FDA-Public Use
  Company Number: US-BAYER-201021798NA

PATIENT
  Age: 57 Year
  Sex: Female
  Weight: 89.55 kg

DRUGS (31)
  1. SORAFENIB (RAF KINASE INHIBITOR) [Suspect]
     Indication: THYROID CANCER METASTATIC
     Dosage: 400 MG, BID
     Route: 048
     Dates: start: 20091217, end: 20100115
  2. SORAFENIB (RAF KINASE INHIBITOR) [Suspect]
     Indication: THYROID CANCER METASTATIC
     Dosage: 400 MG, BID
     Route: 048
     Dates: start: 20100115, end: 20100208
  3. SORAFENIB (RAF KINASE INHIBITOR) [Suspect]
     Indication: THYROID CANCER METASTATIC
     Dosage: 400 MG, BID
     Route: 048
     Dates: start: 20100208, end: 20100311
  4. SORAFENIB (RAF KINASE INHIBITOR) [Suspect]
     Indication: THYROID CANCER METASTATIC
     Dosage: 400 MG, BID
     Route: 048
     Dates: start: 20100311, end: 20100408
  5. SORAFENIB (RAF KINASE INHIBITOR) [Suspect]
     Indication: THYROID CANCER METASTATIC
     Dosage: 400 MG, BID
     Route: 048
     Dates: start: 20100409, end: 20100413
  6. SORAFENIB (RAF KINASE INHIBITOR) [Suspect]
     Indication: THYROID CANCER METASTATIC
     Dosage: 400 MG, BID
     Route: 048
     Dates: start: 20100521, end: 20100623
  7. SORAFENIB (RAF KINASE INHIBITOR) [Suspect]
     Indication: THYROID CANCER METASTATIC
     Dosage: CYCLE 8: AS USED DOSE: 400 - 200 MG
     Route: 048
     Dates: start: 20100803, end: 20100805
  8. SORAFENIB (RAF KINASE INHIBITOR) [Suspect]
     Indication: THYROID CANCER METASTATIC
     Dosage: CYCLE 9: AS USED DOSE: 400 - 200 MG
     Route: 048
     Dates: start: 20100805, end: 20100901
  9. SORAFENIB (RAF KINASE INHIBITOR) [Suspect]
     Indication: THYROID CANCER METASTATIC
     Dosage: CYCLE 10: DUE TO SUBJECT ERROR
     Route: 048
     Dates: start: 20100919, end: 20100920
  10. SORAFENIB (RAF KINASE INHIBITOR) [Suspect]
     Indication: THYROID CANCER METASTATIC
     Dosage: CYCLE 11: AS USED DOSE: 400 - 200 MG
     Route: 048
     Dates: start: 20100921
  11. SORAFENIB (RAF KINASE INHIBITOR) [Suspect]
     Indication: THYROID CANCER METASTATIC
     Dosage: CYCLE 12: 400 + 200 MG QD
     Route: 048
     Dates: start: 20100923, end: 20101126
  12. AMBIEN [Concomitant]
     Indication: INSOMNIA
     Dosage: 10-15 MG
     Route: 048
     Dates: start: 1999
  13. FIORICET W/CODEINE [Concomitant]
     Indication: MIGRAINE
     Dosage: 1 TABLET 6-7 X DAILY
     Route: 048
     Dates: start: 1980, end: 20100416
  14. HYZAAR [Concomitant]
     Indication: HYPERTENSION
     Dosage: 1 TABLET DAILY - AS USED DOSE: 100-25 MG
     Route: 048
     Dates: start: 1999, end: 20100505
  15. LORAZEPAM [Concomitant]
     Indication: ANXIETY
     Dosage: ONCE A MONTH FOR CT SCAN
     Route: 048
     Dates: start: 2009
  16. PREDNISONE [Concomitant]
     Indication: IRITIS
     Route: 048
     Dates: start: 2000
  17. PRISTIQ [Concomitant]
     Indication: DEPRESSION
     Route: 048
     Dates: start: 2009
  18. PROCARDIA XL [Concomitant]
     Indication: HYPERTENSION
     Dosage: 60 MG, QD
     Route: 048
     Dates: start: 2005, end: 20100203
  19. PROCARDIA XL [Concomitant]
     Indication: HYPERTENSION
     Route: 048
     Dates: start: 20100204, end: 20100505
  20. SYNTHROID [Concomitant]
     Indication: HYPOTHYROIDISM
     Route: 048
     Dates: start: 20070601
  21. VALIUM [Concomitant]
     Indication: MUSCLE RELAXANT THERAPY
     Dosage: 5 MG, QD
     Route: 048
     Dates: start: 2009, end: 20090515
  22. VITAMIN D [Concomitant]
     Indication: SUPPLEMENTATION THERAPY
     Route: 048
     Dates: start: 2008
  23. LOMOTIL [DIPHENOXYLATE HYDROCHLORIDE] [Concomitant]
     Indication: DIARRHOEA
     Route: 048
     Dates: start: 20100224, end: 20100224
  24. CALCIUM CARBONATE [Concomitant]
     Indication: HYPOCALCAEMIA
     Dosage: DAILY DOSE 500 MG
     Dates: start: 20100411
  25. FIORINAL WITH CODEINE [Concomitant]
     Indication: MIGRAINE
     Route: 048
     Dates: start: 20100416
  26. DILAUDID [Concomitant]
     Indication: PAIN
     Dosage: 1 MG Q4HR, PRN
  27. NORMAL SALINE [Concomitant]
     Indication: MIGRAINE
     Dosage: 500 ML, UNK
     Dates: start: 20101208
  28. NORMAL SALINE [Concomitant]
     Indication: MIGRAINE
     Dosage: 1 L, UNK
     Dates: start: 20100901, end: 20100903
  29. ATIVAN [Concomitant]
     Indication: ANXIETY
     Dosage: 1 MG Q4HR, PRN
  30. LISINOPRIL [Concomitant]
     Dosage: 2.5 MG, QD
  31. TRAZODONE [Concomitant]
     Indication: INSOMNIA
     Dosage: 150MG BEDTIME AND 75MG MORNING
     Dates: start: 20100705

REACTIONS (4)
  - Mitral valve incompetence [Recovered/Resolved]
  - Migraine [Recovered/Resolved]
  - Respiratory failure [Fatal]
  - Pleural effusion [Recovered/Resolved]
